FAERS Safety Report 18819483 (Version 3)
Quarter: 2023Q1

REPORT INFORMATION
  Report Type: Spontaneous
  Country: US (occurrence: US)
  Receive Date: 20210201
  Receipt Date: 20230124
  Transmission Date: 20230418
  Serious: Yes (Other)
  Sender: FDA-Public Use
  Company Number: US-002147023-NVSC2021US021277

PATIENT
  Sex: Female

DRUGS (2)
  1. BEOVU [Suspect]
     Active Substance: BROLUCIZUMAB-DBLL
     Indication: Neovascular age-related macular degeneration
     Dosage: 6 MG / 0.05 ML
     Route: 031
     Dates: start: 20200121
  2. BEOVU [Suspect]
     Active Substance: BROLUCIZUMAB-DBLL
     Dosage: 6 MG / 0.05 ML
     Route: 031
     Dates: start: 20200130

REACTIONS (20)
  - Macular oedema [Unknown]
  - Cataract nuclear [Unknown]
  - Cataract [Unknown]
  - Retinal artery occlusion [Unknown]
  - Retinal vascular occlusion [Unknown]
  - Retinal vasculitis [Unknown]
  - Vitreous detachment [Unknown]
  - Iridocyclitis [Recovering/Resolving]
  - Eye injury [Not Recovered/Not Resolved]
  - Injury [Unknown]
  - Pain [Unknown]
  - Emotional distress [Unknown]
  - Deformity [Unknown]
  - Anxiety [Unknown]
  - Anhedonia [Unknown]
  - Blepharitis [Unknown]
  - Photophobia [Unknown]
  - Giant cell arteritis [Unknown]
  - Vision blurred [Unknown]
  - Eye inflammation [Unknown]
